FAERS Safety Report 24457920 (Version 2)
Quarter: 2024Q4

REPORT INFORMATION
  Report Type: Report from Study
  Country: CO (occurrence: CO)
  Receive Date: 20241018
  Receipt Date: 20241025
  Transmission Date: 20250115
  Serious: Yes (Hospitalization, Other)
  Sender: JOHNSON AND JOHNSON
  Company Number: CO-JNJFOC-20241040629

PATIENT
  Age: 27 Year
  Sex: Male
  Weight: 66 kg

DRUGS (7)
  1. INVEGA SUSTENNA [Suspect]
     Active Substance: PALIPERIDONE PALMITATE
     Indication: Schizophrenia
     Dosage: DATE OF LAST APPLICATION: 28/SEP/2024
     Route: 030
     Dates: start: 20220707
  2. INVEGA SUSTENNA [Suspect]
     Active Substance: PALIPERIDONE PALMITATE
  3. INVEGA SUSTENNA [Suspect]
     Active Substance: PALIPERIDONE PALMITATE
  4. VALPROIC ACID [Concomitant]
     Active Substance: VALPROIC ACID
  5. OLANZAPINE [Concomitant]
     Active Substance: OLANZAPINE
  6. LEVOMEPROMAZINE [Concomitant]
     Active Substance: LEVOMEPROMAZINE
  7. BIPERIDEN [Concomitant]
     Active Substance: BIPERIDEN

REACTIONS (7)
  - Hospitalisation [Not Recovered/Not Resolved]
  - Blindness [Unknown]
  - Dystonia [Unknown]
  - Parkinson^s disease [Unknown]
  - Substance abuse [Unknown]
  - Eye disorder [Unknown]
  - Pain [Unknown]

NARRATIVE: CASE EVENT DATE: 20240909
